FAERS Safety Report 6084811-5 (Version None)
Quarter: 2009Q1

REPORT INFORMATION
  Report Type: 
  Country: None (occurrence: None)
  Receive Date: 20090218
  Receipt Date: 20081113
  Transmission Date: 20090719
  Serious: Yes (Hospitalization)
  Sender: FDA-Public Use
  Company Number: 430030M08USA

PATIENT
  Age: 81 Year
  Sex: Male

DRUGS (18)
  1. NOVANTRONE [Suspect]
     Indication: PROSTATE CANCER METASTATIC
     Dosage: 16 MG, 1 IN 21 DAYS, INTRAVENOUS
     Route: 042
     Dates: start: 20080611, end: 20081008
  2. CETUXIMAB(CETUXIMAB) [Suspect]
     Indication: PROSTATE CANCER METASTATIC
     Dosage: 460 MG, 1 IN 1 WEEKS, INTRAVENOUS
     Route: 042
     Dates: start: 20080611, end: 20081014
  3. DIOVAN [Concomitant]
  4. ATENOLOL [Concomitant]
  5. ZOLOFT [Concomitant]
  6. AMIODARONE [Concomitant]
  7. COMPAZINE [Concomitant]
  8. PERCOCET [Concomitant]
  9. MARINOL [Concomitant]
  10. NITROGLYCERIN [Concomitant]
  11. SENOKOT [Concomitant]
  12. SLOW-MAG (MAGNESIUM CHLORIDE ANHYDROUS) [Concomitant]
  13. PREDNISONE [Concomitant]
  14. LIPITOR [Concomitant]
  15. ASPIRIN [Concomitant]
  16. PRILOSEC [Concomitant]
  17. HUMALOG [INSULIN] (INSULIN LISPRO) [Concomitant]
  18. GLIPIZIDE [Concomitant]

REACTIONS (10)
  - ARTHRALGIA [None]
  - ASTHENIA [None]
  - CONTUSION [None]
  - DEHYDRATION [None]
  - DIASTOLIC DYSFUNCTION [None]
  - HYPOKALAEMIA [None]
  - LEFT VENTRICULAR HYPERTROPHY [None]
  - PAIN [None]
  - PELVIC PAIN [None]
  - SYNCOPE [None]
